FAERS Safety Report 10018861 (Version 1)
Quarter: 2014Q1

REPORT INFORMATION
  Report Type: Spontaneous
  Country: US (occurrence: US)
  Receive Date: 20140318
  Receipt Date: 20140318
  Transmission Date: 20141002
  Serious: No
  Sender: FDA-Public Use
  Company Number: US-B.I. PHARMACEUTICALS,INC./RIDGEFIELD-2014-BI-10651BP

PATIENT
  Age: 64 Year
  Sex: Female

DRUGS (17)
  1. SPIRIVA [Suspect]
     Indication: CHRONIC OBSTRUCTIVE PULMONARY DISEASE
     Dosage: 18 MCG
     Route: 055
     Dates: start: 20140303
  2. TRAZODONE [Concomitant]
     Indication: DEPRESSION
     Dosage: 50 MG
     Route: 048
  3. MAALOX [Concomitant]
     Indication: RENAL FAILURE
     Dosage: STRENGTH: 1 TEASPOONFUL; DAILY DOSE: 1 TEASPOONFUL
     Route: 048
  4. TYLENOL [Concomitant]
     Indication: ARTHRITIS
     Route: 048
  5. CYMBALTA [Concomitant]
     Indication: DEPRESSION
     Dosage: 60 MG
     Route: 048
     Dates: start: 2005
  6. BAKING SODA [Concomitant]
     Indication: RENAL FAILURE
     Dosage: STRENGTH: 1 TASPOONFUL; DAILY DOSE: 1 TEASPOONFUL
     Route: 048
  7. AMITRIPTYLLINE [Concomitant]
     Indication: HYPOAESTHESIA
     Route: 048
     Dates: start: 2014
  8. FISH OIL [Concomitant]
     Indication: ARTHRITIS
     Dosage: 3000 MG
     Route: 048
  9. ENALOPRIL [Concomitant]
     Indication: HYPERTENSION
     Dosage: 20 MG
     Route: 048
  10. COLCHICINE [Concomitant]
     Indication: GOUT
     Dosage: 0.6 MG
     Route: 048
  11. PEPCID [Concomitant]
     Indication: GASTROOESOPHAGEAL REFLUX DISEASE
     Dosage: 20 MG
     Route: 048
  12. ALLOPURINOL [Concomitant]
     Indication: GOUT
     Dosage: 300 MG
     Route: 048
  13. ALLOPURINOL [Concomitant]
     Dosage: 100 MG
     Route: 048
  14. GLUCOASAMINE AND  CHONDROITIN TRIPLE STRENGTH [Concomitant]
     Indication: ARTHRITIS
     Dosage: 3 ANZ
     Route: 048
  15. LEVOTHYROXINE [Concomitant]
     Indication: HYPOTHYROIDISM
     Dosage: 100 MCG
     Route: 048
  16. LASIX [Concomitant]
     Indication: RENAL FAILURE
     Route: 048
  17. LITHIUM CARBONATE [Concomitant]
     Indication: BIPOLAR DISORDER
     Dosage: 300 MG
     Route: 048

REACTIONS (1)
  - Urine output decreased [Not Recovered/Not Resolved]
